FAERS Safety Report 6239043-4 (Version None)
Quarter: 2009Q2

REPORT INFORMATION
  Report Type: 
  Country: None (occurrence: None)
  Receive Date: 20090622
  Receipt Date: 20090617
  Transmission Date: 20091009
  Serious: Yes (Death, Other)
  Sender: FDA-Public Use
  Company Number: PHHY2009FR10816

PATIENT
  Sex: Male
  Weight: 66 kg

DRUGS (5)
  1. SANDOSTATIN [Suspect]
     Indication: INCREASED BRONCHIAL SECRETION
     Dosage: 100 UG, UNK
     Route: 042
     Dates: start: 20090611
  2. SANDOSTATIN [Suspect]
     Indication: TACHYPNOEA
     Dosage: 100 UG, UNK
  3. SANDOSTATIN [Suspect]
     Indication: PULMONARY HYPERTENSION
     Dosage: INJECTION BY ELECTRIC SYRINGE
  4. MIDAZOLAM HCL [Concomitant]
     Dosage: 2 DURING THE DAY AND 4 DURING THE NIGHT
     Route: 042
  5. METHYLPREDNISOLONE [Concomitant]
     Dosage: 60 MG, UNK
     Dates: start: 20090104, end: 20090111

REACTIONS (6)
  - APNOEA [None]
  - DEATH [None]
  - FLUSHING [None]
  - INCREASED BRONCHIAL SECRETION [None]
  - RESPIRATORY RATE INCREASED [None]
  - THERAPEUTIC RESPONSE UNEXPECTED [None]
